FAERS Safety Report 5018377-5 (Version None)
Quarter: 2006Q2

REPORT INFORMATION
  Report Type: 
  Country: None (occurrence: None)
  Receive Date: 20060530
  Receipt Date: 20060511
  Transmission Date: 20061013
  Serious: Yes (Hospitalization)
  Sender: FDA-Public Use
  Company Number: 430008L06USA

PATIENT

DRUGS (2)
  1. NOVANTRONE [Suspect]
     Indication: SECONDARY PROGRESSIVE MULTIPLE SCLEROSIS
     Dosage: 12 MG/M2, 1 IN 12 WEEKS, INTRAVENOUS
     Route: 042
  2. DRUGS FOR FUNCTIONAL GASTROINTEST. DISORDERS [Concomitant]

REACTIONS (2)
  - LEUKOPENIA [None]
  - UROSEPSIS [None]
